FAERS Safety Report 12446710 (Version 3)
Quarter: 2016Q3

REPORT INFORMATION
  Report Type: Spontaneous
  Country: US (occurrence: US)
  Receive Date: 20160608
  Receipt Date: 20160711
  Transmission Date: 20161109
  Serious: No
  Sender: FDA-Public Use
  Company Number: US-PFIZER INC-2016268572

PATIENT
  Age: 75 Year
  Sex: Male
  Weight: 93 kg

DRUGS (3)
  1. CAVERJECT IMPULSE [Suspect]
     Active Substance: ALPROSTADIL
     Dosage: 7.5 UG, UNK
     Dates: end: 20160519
  2. CAVERJECT IMPULSE [Suspect]
     Active Substance: ALPROSTADIL
     Indication: ERECTILE DYSFUNCTION
     Dosage: 10 UG, UNK
     Dates: start: 20160515
  3. CAVERJECT IMPULSE [Suspect]
     Active Substance: ALPROSTADIL
     Dosage: 10 UG, UNK

REACTIONS (5)
  - Product quality issue [Unknown]
  - Intentional product misuse [Recovered/Resolved]
  - Underdose [Recovered/Resolved]
  - Erection increased [Recovered/Resolved]
  - Penile pain [Recovered/Resolved]

NARRATIVE: CASE EVENT DATE: 20160515
